FAERS Safety Report 14199165 (Version 1)
Quarter: 2017Q4

REPORT INFORMATION
  Report Type: Spontaneous
  Country: US (occurrence: US)
  Receive Date: 20171117
  Receipt Date: 20171117
  Transmission Date: 20180321
  Serious: Yes (Other)
  Sender: FDA-Public Use
  Company Number: PHHY2017US165439

PATIENT
  Age: 31 Year
  Sex: Male

DRUGS (2)
  1. ETOPOSIDE. [Suspect]
     Active Substance: ETOPOSIDE
     Indication: CNS GERMINOMA
     Dosage: UNK (4 CYCLES)
     Route: 062
  2. CARBOPLATIN. [Suspect]
     Active Substance: CARBOPLATIN
     Indication: CNS GERMINOMA
     Dosage: UNK (4 CYCLES)
     Route: 062

REACTIONS (6)
  - Fatigue [Unknown]
  - Febrile neutropenia [Unknown]
  - Swelling face [Unknown]
  - Product use in unapproved indication [Unknown]
  - Pancytopenia [Recovered/Resolved]
  - Diarrhoea [Unknown]
